FAERS Safety Report 7119358-8 (Version None)
Quarter: 2010Q4

REPORT INFORMATION
  Report Type: 
  Country: None (occurrence: None)
  Receive Date: 20101123
  Receipt Date: 20101116
  Transmission Date: 20110411
  Serious: Yes (Other)
  Sender: FDA-Public Use
  Company Number: CA-JNJFOC-20100503685

PATIENT
  Sex: Female
  Weight: 10.43 kg

DRUGS (3)
  1. CONCENTRATED MOTRIN INFANTS DROPS [Suspect]
     Indication: NASOPHARYNGITIS
     Dosage: 60 MG ONCE EVERY 8 HOURS AS NEEDED
  2. CONCENTRATED MOTRIN INFANTS DROPS [Suspect]
     Indication: PYREXIA
     Dosage: 60 MG ONCE EVERY 8 HOURS AS NEEDED
  3. CONCENTRATED MOTRIN INFANTS DROPS [Suspect]
     Indication: TEETHING
     Dosage: 60 MG ONCE EVERY 8 HOURS AS NEEDED

REACTIONS (2)
  - CONVULSION [None]
  - PRODUCT QUALITY ISSUE [None]
